FAERS Safety Report 4287066-7 (Version None)
Quarter: 2004Q1

REPORT INFORMATION
  Report Type: 
  Country: None (occurrence: None)
  Receive Date: 20040126
  Receipt Date: 20031111
  Transmission Date: 20041129
  Serious: No
  Sender: FDA-Public Use
  Company Number: USA031152212

PATIENT
  Age: 67 Year
  Sex: Female
  Weight: 53 kg

DRUGS (11)
  1. FORTEO [Suspect]
     Indication: OSTEOPOROSIS
     Dosage: 20 UG/DAILY
     Dates: start: 20031105, end: 20031107
  2. VITAMIN E [Concomitant]
  3. CALCIUM [Concomitant]
  4. SYNTHROID (LEVOXYTHROXINE SODIUM) [Concomitant]
  5. VOLTAREN [Concomitant]
  6. METOPROLOL TARTRATE [Concomitant]
  7. ELAVIL [Concomitant]
  8. ACIPHEX [Concomitant]
  9. FOSAMAX [Concomitant]
  10. MULTI-VITAMINS [Concomitant]
  11. OXYCODONE HCL [Concomitant]

REACTIONS (3)
  - ARTHRALGIA [None]
  - BONE PAIN [None]
  - DIFFICULTY IN WALKING [None]
